FAERS Safety Report 14341988 (Version 1)
Quarter: 2018Q1

REPORT INFORMATION
  Report Type: Spontaneous
  Country: CA (occurrence: CA)
  Receive Date: 20180102
  Receipt Date: 20180102
  Transmission Date: 20180509
  Serious: Yes (Death, Other)
  Sender: FDA-Public Use
  Company Number: CA-MYLANLABS-2017M1081054

PATIENT
  Sex: Male

DRUGS (4)
  1. AFATINIB [Suspect]
     Active Substance: AFATINIB
     Indication: NON-SMALL CELL LUNG CANCER STAGE IIIA
     Dosage: 40 MG PER DAY
     Route: 065
     Dates: start: 201101
  2. GEFITINIB. [Concomitant]
     Active Substance: GEFITINIB
     Indication: NON-SMALL CELL LUNG CANCER STAGE IIIA
     Dosage: 250 MG PER DAY
     Route: 065
     Dates: start: 200807
  3. PEMETREXED. [Concomitant]
     Active Substance: PEMETREXED
     Indication: NON-SMALL CELL LUNG CANCER STAGE IIIA
     Dosage: UNK
     Route: 065
  4. ERLOTINIB [Suspect]
     Active Substance: ERLOTINIB
     Indication: NON-SMALL CELL LUNG CANCER STAGE IIIA
     Dosage: 150 MG PER DAY
     Route: 065

REACTIONS (1)
  - Drug resistance [Unknown]
